FAERS Safety Report 8492775-X (Version None)
Quarter: 2012Q3

REPORT INFORMATION
  Report Type: 
  Country: None (occurrence: None)
  Receive Date: 20120706
  Receipt Date: 20120627
  Transmission Date: 20120928
  Serious: Yes (Other)
  Sender: FDA-Public Use
  Company Number: US-JNJFOC-20120613946

PATIENT
  Sex: Female
  Weight: 54.43 kg

DRUGS (10)
  1. XARELTO [Suspect]
     Indication: CEREBROVASCULAR ACCIDENT PROPHYLAXIS
     Route: 048
     Dates: start: 20120613, end: 20120618
  2. AMLODIPINE [Concomitant]
     Indication: BLOOD PRESSURE
     Route: 048
     Dates: start: 20100101
  3. XARELTO [Suspect]
     Indication: ATRIAL FIBRILLATION
     Route: 048
     Dates: start: 20120613, end: 20120618
  4. ZOLPIDEM [Concomitant]
     Indication: SLEEP DISORDER
     Route: 048
     Dates: start: 20110101
  5. CALCIUM [Concomitant]
  6. ATENOLOL [Concomitant]
     Indication: BLOOD PRESSURE
     Route: 048
  7. FLECAINIDE ACETATE [Concomitant]
     Indication: ATRIAL FIBRILLATION
     Route: 048
  8. TORSEMIDE [Concomitant]
     Indication: DIURETIC THERAPY
     Route: 048
     Dates: start: 20110101
  9. DIAZEPAM [Concomitant]
     Indication: ANXIETY
     Route: 048
  10. OXYCODONE AND ACETAMINOPHEN [Concomitant]
     Indication: PAIN
     Route: 048
     Dates: start: 20120201

REACTIONS (1)
  - POLYP [None]
